FAERS Safety Report 4723548-9 (Version None)
Quarter: 2005Q3

REPORT INFORMATION
  Report Type: 
  Country: None (occurrence: None)
  Receive Date: 20050720
  Receipt Date: 20050720
  Transmission Date: 20060218
  Serious: Yes (Hospitalization)
  Sender: FDA-Public Use
  Company Number: None

PATIENT
  Age: 84 Year
  Sex: Male
  Weight: 83.4619 kg

DRUGS (10)
  1. HEPARIN [Suspect]
     Indication: THROMBOSIS PROPHYLAXIS
     Dosage: 5000 SQ BID
     Route: 058
     Dates: start: 20050208, end: 20050210
  2. RANITIDINE [Suspect]
     Indication: GASTROINTESTINAL DISORDER
     Dosage: 300 MG BID
     Dates: start: 20050208, end: 20050210
  3. RANITIDINE [Suspect]
     Indication: PROPHYLAXIS
     Dosage: 300 MG BID
     Dates: start: 20050208, end: 20050210
  4. ASPIRIN [Concomitant]
  5. DILANTIN [Concomitant]
  6. TRAZODONE HCL [Concomitant]
  7. SERTRALINE HCL [Concomitant]
  8. QUETIAPINE [Concomitant]
  9. LEVOTHYROXINE SODIUM [Concomitant]
  10. ALBUTEROL [Concomitant]

REACTIONS (1)
  - PLATELET COUNT DECREASED [None]
